FAERS Safety Report 20320645 (Version 9)
Quarter: 2022Q4

REPORT INFORMATION
  Report Type: Report from Study
  Country: FR (occurrence: FR)
  Receive Date: 20220111
  Receipt Date: 20221031
  Transmission Date: 20230113
  Serious: Yes (Death)
  Sender: FDA-Public Use
  Company Number: FR-GLAXOSMITHKLINE-FR2022003575

PATIENT

DRUGS (11)
  1. NIRAPARIB [Suspect]
     Active Substance: NIRAPARIB
     Indication: Non-small cell lung cancer
     Dosage: DOSE AT CYCLE 1 - DAY 1
     Route: 048
     Dates: start: 20211210
  2. NIRAPARIB [Suspect]
     Active Substance: NIRAPARIB
     Dosage: DOSE AT CYCLE 1 - DAY 15
     Route: 048
     Dates: start: 20211224
  3. PEMBROLIZUMAB [Suspect]
     Active Substance: PEMBROLIZUMAB
     Indication: Non-small cell lung cancer
     Dosage: DOSE AT CYCLE 1 - DAY 1
     Route: 042
     Dates: start: 20211210, end: 20211210
  4. BISOPROLOL [Concomitant]
     Active Substance: BISOPROLOL
     Indication: Product used for unknown indication
  5. KARDEGIC [Concomitant]
     Active Substance: ASPIRIN DL-LYSINE
     Indication: Product used for unknown indication
  6. PERINDOPRIL [Concomitant]
     Active Substance: PERINDOPRIL
     Indication: Product used for unknown indication
  7. EZETIMIBE\SIMVASTATIN [Concomitant]
     Active Substance: EZETIMIBE\SIMVASTATIN
     Indication: Product used for unknown indication
  8. JANUVIA [Concomitant]
     Active Substance: SITAGLIPTIN PHOSPHATE
     Indication: Product used for unknown indication
  9. FUROSEMIDE [Concomitant]
     Active Substance: FUROSEMIDE
     Indication: Product used for unknown indication
  10. INIPOMP [Concomitant]
     Active Substance: PANTOPRAZOLE SODIUM
     Indication: Product used for unknown indication
  11. LEVOTHYROXINE [Concomitant]
     Active Substance: LEVOTHYROXINE
     Indication: Product used for unknown indication

REACTIONS (1)
  - Sudden death [Fatal]

NARRATIVE: CASE EVENT DATE: 20220106
